FAERS Safety Report 5358547-X (Version None)
Quarter: 2007Q2

REPORT INFORMATION
  Report Type: 
  Country: None (occurrence: None)
  Receive Date: 20070613
  Receipt Date: 20070613
  Transmission Date: 20071010
  Serious: Yes (Other)
  Sender: FDA-Public Use
  Company Number: None

PATIENT
  Sex: Male

DRUGS (9)
  1. REVLIMID [Suspect]
     Indication: MULTIPLE MYELOMA
     Dosage: 15MG DAILY 21D/28D PO
     Route: 048
     Dates: start: 20070102, end: 20070608
  2. QVAR 40 [Concomitant]
  3. VICODIN [Concomitant]
  4. ELAVIL [Concomitant]
  5. OMEPRAZOLE [Concomitant]
  6. DEXAMETHASONE 0.5MG TAB [Concomitant]
  7. WARFARIN SODIUM [Concomitant]
  8. FLOMAX [Concomitant]
  9. HYDROCHLOROTHIAZIDE [Concomitant]

REACTIONS (1)
  - PNEUMONIA [None]
